FAERS Safety Report 8824710 (Version 1)
Quarter: 2012Q4

REPORT INFORMATION
  Report Type: Report from Study
  Country: CA (occurrence: CA)
  Receive Date: 20121004
  Receipt Date: 20121004
  Transmission Date: 20130627
  Serious: Yes (Hospitalization)
  Sender: FDA-Public Use
  Company Number: CA-ABBOTT-12P-028-0986775-00

PATIENT
  Age: 60 Year
  Sex: Male

DRUGS (5)
  1. HUMIRA [Suspect]
     Indication: CROHN^S DISEASE
     Route: 058
     Dates: start: 20090310, end: 20090606
  2. POTASSIUM CITRATE [Concomitant]
     Indication: CALCULUS URINARY
     Dates: start: 20090409, end: 20120828
  3. ALLOPURINOL [Concomitant]
     Indication: CALCULUS URINARY
     Dates: end: 20090408
  4. ALLOPURINOL [Concomitant]
     Dates: start: 20090409, end: 20120828
  5. INFLIXIMAB [Concomitant]
     Indication: CROHN^S DISEASE
     Dates: start: 20120904

REACTIONS (1)
  - Crohn^s disease [Unknown]
